FAERS Safety Report 11099192 (Version 1)
Quarter: 2015Q2

REPORT INFORMATION
  Report Type: Spontaneous
  Country: KR (occurrence: None)
  Receive Date: 20150506
  Receipt Date: 20150506
  Transmission Date: 20150821
  Serious: Yes (Hospitalization)
  Sender: FDA-Public Use
  Company Number: FK201502069

PATIENT
  Age: 40 Year
  Sex: Female

DRUGS (3)
  1. MESNA (MANUFACTURER UNKNOWN) (MESNA) (MESNA) [Suspect]
     Active Substance: MESNA
     Indication: THYMOMA
     Dosage: 500 MG/M2, OVER 15 MINUTES ON DAYS 1 AND 2
     Route: 042
  2. PACLITAXEL (MANUFACTURER UNKNOWN) (PACLITAXEL) (PACLITAXEL) [Suspect]
     Active Substance: PACLITAXEL
     Indication: THYMOMA
     Dosage: 175 MG/M2, OVER 3 HOURS ON DAY 1
     Route: 042
  3. IFOSFAMIDE (MANUFACTURER UNKNOWN) (IFOSFAMIDE) (IFOSFAMIDE) [Suspect]
     Active Substance: IFOSFAMIDE
     Indication: THYMOMA
     Dosage: 2500 MG/M2, OVER 2 HOURS ON DAYS 1 AND 2
     Route: 042

REACTIONS (3)
  - Tumour lysis syndrome [None]
  - Acute kidney injury [None]
  - Haemodialysis [None]
